FAERS Safety Report 7486595-2 (Version None)
Quarter: 2011Q2

REPORT INFORMATION
  Report Type: 
  Country: None (occurrence: None)
  Receive Date: 20110517
  Receipt Date: 20110511
  Transmission Date: 20111010
  Serious: Yes (Hospitalization, Other)
  Sender: FDA-Public Use
  Company Number: PHHO2011BR01009

PATIENT
  Sex: Male
  Weight: 55 kg

DRUGS (9)
  1. PREDNISONE [Suspect]
     Dosage: 12.5 MG, QD
     Route: 048
     Dates: start: 20100831, end: 20101028
  2. MYFORTIC [Suspect]
     Dosage: 180 MG, BID
     Route: 048
     Dates: start: 20100925, end: 20101110
  3. MYFORTIC [Suspect]
     Dosage: 360 MG, BID
     Route: 048
     Dates: start: 20100724, end: 20100924
  4. PREDNISONE [Suspect]
     Dosage: 10 MG, QD
     Route: 048
     Dates: start: 20101029, end: 20110211
  5. MYFORTIC [Suspect]
     Indication: RENAL TRANSPLANT
     Dosage: 720 MG, BID
     Route: 048
     Dates: start: 20100410, end: 20100830
  6. TACROLIMUS [Suspect]
     Indication: RENAL TRANSPLANT
     Dosage: 8 MG, BID
     Route: 048
     Dates: start: 20100410, end: 20110211
  7. PREDNISONE [Suspect]
     Indication: RENAL TRANSPLANT
     Dosage: 15 MG, QD
     Route: 048
     Dates: start: 20100713, end: 20100830
  8. MYFORTIC [Suspect]
     Dosage: 540 MG, BID
     Route: 048
     Dates: start: 20101111, end: 20101118
  9. MYFORTIC [Suspect]
     Dosage: 360 MG, BID
     Route: 048
     Dates: start: 20101119, end: 20110211

REACTIONS (10)
  - FOCAL SEGMENTAL GLOMERULOSCLEROSIS [None]
  - PYREXIA [None]
  - RENAL FAILURE [None]
  - PROSTATITIS [None]
  - KIDNEY FIBROSIS [None]
  - RENAL TUBULAR ATROPHY [None]
  - URINARY TRACT INFECTION [None]
  - RENAL IMPAIRMENT [None]
  - PYELONEPHRITIS [None]
  - RENAL DISORDER [None]
